FAERS Safety Report 5276232-X (Version None)
Quarter: 2007Q1

REPORT INFORMATION
  Report Type: 
  Country: None (occurrence: None)
  Receive Date: 20070321
  Receipt Date: 20061013
  Transmission Date: 20070707
  Serious: Yes (Death, Hospitalization)
  Sender: FDA-Public Use
  Company Number: 234859K06USA

PATIENT
  Age: 72 Year
  Sex: Female
  Weight: 72.5755 kg

DRUGS (5)
  1. REBIF [Suspect]
     Indication: MULTIPLE SCLEROSIS
     Dosage: 44 MCG, 3 IN 1 WEEKS, SUBCUTANEOUS
     Route: 058
     Dates: start: 20040613, end: 20050423
  2. BACLOFEN [Concomitant]
  3. PROVIGIL [Concomitant]
  4. METHOTREXATE [Concomitant]
  5. NEURONTIN [Concomitant]

REACTIONS (1)
  - PNEUMONIA [None]
